FAERS Safety Report 6792491-6 (Version None)
Quarter: 2010Q2

REPORT INFORMATION
  Report Type: 
  Country: None (occurrence: None)
  Receive Date: 20100624
  Receipt Date: 20080804
  Transmission Date: 20101027
  Serious: Yes (Other)
  Sender: FDA-Public Use
  Company Number: US-PFIZER INC-2008066475

PATIENT
  Sex: Female

DRUGS (8)
  1. GEODON [Suspect]
     Indication: DEPRESSION
     Route: 048
     Dates: start: 20080601
  2. BUSPAR [Suspect]
     Indication: DEPRESSION
     Route: 048
     Dates: start: 20080519
  3. EFFEXOR [Concomitant]
     Route: 048
     Dates: start: 20050101
  4. CADUET [Concomitant]
     Indication: HYPERTENSION
     Route: 048
     Dates: start: 20070101
  5. PREMARIN [Concomitant]
     Indication: HORMONE REPLACEMENT THERAPY
     Route: 048
     Dates: start: 19980101
  6. NEXIUM [Concomitant]
     Indication: GASTROOESOPHAGEAL REFLUX DISEASE
     Route: 048
  7. REGLAN [Concomitant]
     Indication: GASTRIC DISORDER
     Route: 048
  8. NORVASC [Concomitant]
     Indication: HYPERTENSION
     Route: 048

REACTIONS (6)
  - CYSTITIS [None]
  - DEHYDRATION [None]
  - MALAISE [None]
  - SINUSITIS [None]
  - VOMITING [None]
  - WEIGHT DECREASED [None]
